FAERS Safety Report 8036625-4 (Version None)
Quarter: 2012Q1

REPORT INFORMATION
  Report Type: 
  Country: None (occurrence: None)
  Receive Date: 20120111
  Receipt Date: 20120104
  Transmission Date: 20120608
  Serious: Yes (Other)
  Sender: FDA-Public Use
  Company Number: PHEH2011US012425

PATIENT

DRUGS (7)
  1. METOPROLOL SUCCINATE [Suspect]
     Indication: HYPERTENSION
     Dosage: 200 MG, BID
  2. DIOVAN [Suspect]
     Dosage: 80 MG, BID
  3. METOPROLOL SUCCINATE [Suspect]
     Dosage: 100 MG, DAILY
  4. GEMFIBROZIL [Concomitant]
     Dosage: 300 MG, HALF/ TWICE DAY
  5. ASPIRIN [Concomitant]
     Dosage: 81 MG
  6. DIOVAN [Suspect]
     Indication: HYPERTENSION
     Dosage: 80 MG, QD
  7. FISH OIL [Concomitant]
     Dosage: 300 MG

REACTIONS (4)
  - BLOOD PRESSURE DECREASED [None]
  - WEIGHT INCREASED [None]
  - WEIGHT DECREASED [None]
  - JOINT SWELLING [None]
